FAERS Safety Report 17297828 (Version 2)
Quarter: 2020Q1

REPORT INFORMATION
  Report Type: Spontaneous
  Country: US (occurrence: US)
  Receive Date: 20200122
  Receipt Date: 20200305
  Transmission Date: 20200409
  Serious: No
  Sender: FDA-Public Use
  Company Number: US-SHIRE-US202002112

PATIENT
  Sex: Female
  Weight: 63.49 kg

DRUGS (4)
  1. XIIDRA [Suspect]
     Active Substance: LIFITEGRAST
     Indication: DRY EYE
     Dosage: 1 GTT DROPS (1 GTT DROPS EACH EYE),, 2X/DAY:BID
     Route: 047
     Dates: start: 2016
  2. XIIDRA [Suspect]
     Active Substance: LIFITEGRAST
     Dosage: 0.2 MILLILITER, 2 DAY
     Route: 047
  3. TRAVATAN [Concomitant]
     Active Substance: TRAVOPROST
     Indication: GLAUCOMA
     Dosage: 1 GTT DROPS, 1X/DAY:QD
     Route: 047
     Dates: start: 2014
  4. SYSTANE ULTRA [Concomitant]
     Active Substance: POLYETHYLENE GLYCOL 400\PROPYLENE GLYCOL
     Indication: PRODUCT USED FOR UNKNOWN INDICATION

REACTIONS (5)
  - Eye pain [Not Recovered/Not Resolved]
  - Product storage error [Not Recovered/Not Resolved]
  - Fear [Not Recovered/Not Resolved]
  - Eye irritation [Not Recovered/Not Resolved]
  - Wrong technique in product usage process [Unknown]

NARRATIVE: CASE EVENT DATE: 2016
